FAERS Safety Report 5852844-7 (Version None)
Quarter: 2008Q3

REPORT INFORMATION
  Report Type: 
  Country: None (occurrence: None)
  Receive Date: 20080821
  Receipt Date: 20080812
  Transmission Date: 20090109
  Serious: Yes (Hospitalization)
  Sender: FDA-Public Use
  Company Number: US-ASTRAZENECA-2008AC02165

PATIENT
  Age: 46 Year
  Sex: Female

DRUGS (3)
  1. ATENOLOL [Suspect]
     Indication: HYPERTENSION
     Route: 048
  2. ACETAMINOPHEN [Concomitant]
  3. ETHANOL [Concomitant]

REACTIONS (3)
  - HYPOTENSION [None]
  - INTENTIONAL OVERDOSE [None]
  - SINUS BRADYCARDIA [None]
